FAERS Safety Report 14841770 (Version 1)
Quarter: 2018Q2

REPORT INFORMATION
  Report Type: Spontaneous
  Country: US (occurrence: US)
  Receive Date: 20180418
  Receipt Date: 20180418
  Transmission Date: 20180711
  Serious: No
  Sender: FDA-Public Use
  Company Number: None

PATIENT
  Age: 46 Year
  Sex: Female

DRUGS (1)
  1. STELARA [Suspect]
     Active Substance: USTEKINUMAB
     Indication: CROHN^S DISEASE
     Route: 058
     Dates: start: 20171207

REACTIONS (5)
  - Insomnia [None]
  - Depressed mood [None]
  - Anxiety [None]
  - Mood altered [None]
  - Crying [None]

NARRATIVE: CASE EVENT DATE: 20180401
